FAERS Safety Report 20774601 (Version 1)
Quarter: 2022Q2

REPORT INFORMATION
  Report Type: Spontaneous
  Country: US (occurrence: US)
  Receive Date: 20220502
  Receipt Date: 20220502
  Transmission Date: 20220721
  Serious: No
  Sender: FDA-Public Use
  Company Number: US-ABBVIE-22K-163-4270848-00

PATIENT
  Sex: Female
  Weight: 45.400 kg

DRUGS (4)
  1. CREON [Suspect]
     Active Substance: PANCRELIPASE AMYLASE\PANCRELIPASE LIPASE\PANCRELIPASE PROTEASE
     Indication: Pancreatic failure
     Dosage: 1 WITH EACH MEAL,6 MONTHS
     Route: 048
     Dates: start: 202108
  2. COBALAMIN [Concomitant]
     Active Substance: COBALAMIN
     Indication: Supplementation therapy
  3. ESTROGENS [Concomitant]
     Active Substance: ESTROGENS
     Indication: Blood oestrogen decreased
     Dosage: PATCH
  4. CROMOLYN SODIUM [Concomitant]
     Active Substance: CROMOLYN SODIUM
     Indication: Gastrointestinal disorder

REACTIONS (2)
  - Vitamin B12 decreased [Unknown]
  - Drug ineffective [Not Recovered/Not Resolved]
